FAERS Safety Report 6057790-4 (Version None)
Quarter: 2009Q1

REPORT INFORMATION
  Report Type: 
  Country: None (occurrence: None)
  Receive Date: 20090129
  Receipt Date: 20090119
  Transmission Date: 20090719
  Serious: Yes (Hospitalization)
  Sender: FDA-Public Use
  Company Number: PHHY2009JP01159

PATIENT
  Age: 24 Year
  Sex: Male

DRUGS (9)
  1. TEGRETOL [Suspect]
     Indication: COMPLEX PARTIAL SEIZURES
     Dosage: 200 MG
  2. LITHIUM CARBONATE [Concomitant]
  3. ZONISAMIDE [Concomitant]
     Dosage: 200MG
  4. ZONISAMIDE [Concomitant]
     Dosage: 100MG
  5. CLONAZEPAM [Concomitant]
     Dosage: 8MG
  6. ALEVIATIN [Concomitant]
  7. VALPROATE SODIUM [Concomitant]
     Dosage: 600MG
  8. VALPROIC ACID [Concomitant]
  9. CLOBAZAM [Concomitant]

REACTIONS (10)
  - DEPRESSED LEVEL OF CONSCIOUSNESS [None]
  - DIZZINESS [None]
  - INAPPROPRIATE AFFECT [None]
  - IRRITABILITY [None]
  - LOGORRHOEA [None]
  - MANIA [None]
  - NAUSEA [None]
  - SALIVARY HYPERSECRETION [None]
  - SENSORY DISTURBANCE [None]
  - SLEEP DISORDER [None]
